FAERS Safety Report 4675622-3 (Version None)
Quarter: 2005Q2

REPORT INFORMATION
  Report Type: 
  Country: None (occurrence: None)
  Receive Date: 20050527
  Receipt Date: 20050511
  Transmission Date: 20051028
  Serious: Yes (Other)
  Sender: FDA-Public Use
  Company Number: 200511384JP

PATIENT
  Age: 42 Year
  Sex: Female

DRUGS (6)
  1. KETEK [Suspect]
     Indication: ALLERGIC SINUSITIS
     Route: 048
     Dates: start: 20050506
  2. KETEK [Suspect]
     Indication: LARYNGOPHARYNGITIS
     Route: 048
     Dates: start: 20050506
  3. MUCODYNE [Concomitant]
     Route: 048
  4. HUSCODE [Concomitant]
  5. CYANOCOBALAMIN [Concomitant]
     Route: 048
  6. RINDERON [Concomitant]
     Route: 045

REACTIONS (6)
  - ANXIETY [None]
  - COLD SWEAT [None]
  - NAUSEA [None]
  - PALPITATIONS [None]
  - TREMOR [None]
  - URINARY INCONTINENCE [None]
